FAERS Safety Report 5580628-6 (Version None)
Quarter: 2008Q1

REPORT INFORMATION
  Report Type: 
  Country: None (occurrence: None)
  Receive Date: 20080103
  Receipt Date: 20071222
  Transmission Date: 20080703
  Serious: Yes (Hospitalization, Other)
  Sender: FDA-Public Use
  Company Number: US-PFIZER INC-2007102157

PATIENT
  Sex: Male
  Weight: 83.5 kg

DRUGS (13)
  1. GEODON [Suspect]
     Indication: PARANOIA
     Dosage: DAILY DOSE:320MG
     Dates: start: 20030101, end: 20060301
  2. KLONOPIN [Concomitant]
  3. KLONOPIN [Concomitant]
  4. LEXAPRO [Concomitant]
  5. LEXAPRO [Concomitant]
  6. NEURONTIN [Concomitant]
  7. NEURONTIN [Concomitant]
  8. ZYRTEC [Concomitant]
  9. ZYRTEC [Concomitant]
  10. VITAMINS [Concomitant]
  11. VITAMINS [Concomitant]
  12. ADVAIR DISKUS 100/50 [Concomitant]
  13. ADVAIR DISKUS 100/50 [Concomitant]

REACTIONS (6)
  - ANXIETY [None]
  - HYPERTENSION [None]
  - INSOMNIA [None]
  - MENTAL DISORDER [None]
  - NERVOUS SYSTEM DISORDER [None]
  - OVERDOSE [None]
